FAERS Safety Report 10409607 (Version 6)
Quarter: 2022Q1

REPORT INFORMATION
  Report Type: Report from Study
  Country: GB (occurrence: GB)
  Receive Date: 20140826
  Receipt Date: 20220323
  Transmission Date: 20220423
  Serious: Yes (Hospitalization, Other)
  Sender: FDA-Public Use
  Company Number: GB-SHIRE-GB201405315

PATIENT
  Age: 13 Year
  Sex: Male

DRUGS (13)
  1. IDURSULFASE [Suspect]
     Active Substance: IDURSULFASE
     Indication: Mucopolysaccharidosis II
     Dosage: 0.44 MILLIGRAM/KILOGRAM, 1/WEEK
     Route: 041
     Dates: start: 20070419
  2. IDURSULFASE [Suspect]
     Active Substance: IDURSULFASE
     Dosage: 0.59 MILLIGRAM/KILOGRAM, 1/WEEK
     Route: 041
     Dates: start: 20070419
  3. IDURSULFASE [Suspect]
     Active Substance: IDURSULFASE
     Dosage: 0.44 MILLIGRAM/KILOGRAM, 1/WEEK
     Route: 041
     Dates: start: 20070705
  4. IDURSULFASE [Suspect]
     Active Substance: IDURSULFASE
     Dosage: 0.4 MILLIGRAM/KILOGRAM, 1/WEEK
     Route: 041
     Dates: start: 20070712
  5. IDURSULFASE [Suspect]
     Active Substance: IDURSULFASE
     Dosage: 0.43 MILLIGRAM/KILOGRAM, 1/WEEK
     Route: 041
     Dates: start: 20071004
  6. IDURSULFASE [Suspect]
     Active Substance: IDURSULFASE
     Dosage: 0.45 MILLIGRAM/KILOGRAM, 1/WEEK
     Route: 041
     Dates: start: 20071030
  7. IDURSULFASE [Suspect]
     Active Substance: IDURSULFASE
     Dosage: 0.43 MILLIGRAM/KILOGRAM, 1/WEEK
     Route: 041
     Dates: start: 20071106
  8. IDURSULFASE [Suspect]
     Active Substance: IDURSULFASE
     Dosage: 0.42 MILLIGRAM/KILOGRAM, 1/WEEK
     Route: 041
     Dates: start: 20071218
  9. IDURSULFASE [Suspect]
     Active Substance: IDURSULFASE
     Dosage: 0.41 MILLIGRAM/KILOGRAM, 1/WEEK
     Route: 041
     Dates: start: 20080317
  10. IDURSULFASE [Suspect]
     Active Substance: IDURSULFASE
     Dosage: 0.39 MILLIGRAM/KILOGRAM, 1/WEEK
     Route: 041
     Dates: start: 20080923
  11. IDURSULFASE [Suspect]
     Active Substance: IDURSULFASE
     Dosage: 0.39 MILLIGRAM/KILOGRAM, 1/WEEK
     Route: 041
     Dates: start: 20080923
  12. IDURSULFASE [Suspect]
     Active Substance: IDURSULFASE
     Dosage: 0.5 MILLIGRAM/KILOGRAM, 1/WEEK
     Route: 041
     Dates: start: 20090304, end: 20130610
  13. IDURSULFASE [Suspect]
     Active Substance: IDURSULFASE
     Dosage: 0.5 MILLIGRAM/KILOGRAM, 1/WEEK
     Route: 041
     Dates: start: 20090304, end: 20130610

REACTIONS (5)
  - Gastrointestinal pain [Unknown]
  - Respiratory distress [Unknown]
  - Seizure [Unknown]
  - Lower respiratory tract infection [Unknown]
  - Oral infection [Unknown]

NARRATIVE: CASE EVENT DATE: 20090904
